FAERS Safety Report 7397962-X (Version None)
Quarter: 2011Q2

REPORT INFORMATION
  Report Type: 
  Country: None (occurrence: None)
  Receive Date: 20110406
  Receipt Date: 20110323
  Transmission Date: 20111010
  Serious: Yes (Death, Hospitalization)
  Sender: FDA-Public Use
  Company Number: SG-BAYER-2011-025541

PATIENT
  Age: 52 Year
  Sex: Male

DRUGS (7)
  1. CAPTOPRIL [Concomitant]
  2. GLIBENCLAMIDE [Concomitant]
  3. METFORMIN [Concomitant]
  4. ASPIRIN [Suspect]
     Dosage: 81 MG, QD
     Dates: start: 20090722, end: 20100727
  5. SIMVASTATIN [Concomitant]
  6. UNCODEABLE ^INVESTIGATIONAL DRUG^ [Concomitant]
  7. ATENOLOL [Concomitant]

REACTIONS (3)
  - PNEUMONIA [None]
  - CEREBROVASCULAR ACCIDENT [None]
  - SEPSIS [None]
